FAERS Safety Report 15041185 (Version 1)
Quarter: 2018Q2

REPORT INFORMATION
  Report Type: Spontaneous
  Country: US (occurrence: US)
  Receive Date: 20180621
  Receipt Date: 20180621
  Transmission Date: 20180711
  Serious: No
  Sender: FDA-Public Use
  Company Number: US-009507513-1806USA003994

PATIENT
  Age: 77 Year
  Sex: Male

DRUGS (4)
  1. CMX001 [Concomitant]
     Indication: PROGRESSIVE MULTIFOCAL LEUKOENCEPHALOPATHY
     Dosage: 100 MG ORALLY TWICE WEEKLY
     Route: 048
  2. REMERON [Suspect]
     Active Substance: MIRTAZAPINE
     Indication: PROGRESSIVE MULTIFOCAL LEUKOENCEPHALOPATHY
     Dosage: 30 MG ORALLY ONCE DAILY
     Route: 048
  3. MEFLOQUINE [Concomitant]
     Active Substance: MEFLOQUINE
     Dosage: 250 MG ORALLY ONCE DAILY
     Route: 048
  4. MEFLOQUINE [Concomitant]
     Active Substance: MEFLOQUINE
     Dosage: 250 MG, ONCE WEEKLY
     Route: 048

REACTIONS (1)
  - Product use in unapproved indication [Unknown]
